FAERS Safety Report 11188981 (Version 1)
Quarter: 2015Q2

REPORT INFORMATION
  Report Type: Spontaneous
  Country: US (occurrence: None)
  Receive Date: 20150612
  Receipt Date: 20150612
  Transmission Date: 20150821
  Serious: Yes (Hospitalization)
  Sender: FDA-Public Use
  Company Number: None

PATIENT
  Age: 52 Year
  Sex: Male
  Weight: 105 kg

DRUGS (2)
  1. TAXOL [Suspect]
     Active Substance: PACLITAXEL
     Dates: end: 20150605
  2. CARBOPLATIN. [Suspect]
     Active Substance: CARBOPLATIN
     Dates: end: 20150605

REACTIONS (8)
  - Pneumonia [None]
  - Febrile neutropenia [None]
  - Dyspnoea [None]
  - Cough [None]
  - White blood cell count decreased [None]
  - Respiratory failure [None]
  - Hypotension [None]
  - Neutrophil count decreased [None]

NARRATIVE: CASE EVENT DATE: 20150608
